FAERS Safety Report 13065907 (Version 2)
Quarter: 2017Q1

REPORT INFORMATION
  Report Type: Spontaneous
  Country: SE (occurrence: SE)
  Receive Date: 20161227
  Receipt Date: 20170125
  Transmission Date: 20170428
  Serious: Yes (Other)
  Sender: FDA-Public Use
  Company Number: SE-GLAXOSMITHKLINE-SE2016188562

PATIENT
  Age: 37 Year
  Sex: Male

DRUGS (26)
  1. HYDROCORTISONE. [Concomitant]
     Active Substance: HYDROCORTISONE
     Dosage: UNK
  2. ALENDRONIC ACID [Concomitant]
     Active Substance: ALENDRONIC ACID
     Dosage: UNK
  3. BETAPRED [Concomitant]
     Active Substance: BETAMETHASONE SODIUM PHOSPHATE
     Dosage: UNK
  4. SPIRIVA RESPIMAT [Concomitant]
     Active Substance: TIOTROPIUM BROMIDE
     Dosage: UNK
  5. LYRICA [Concomitant]
     Active Substance: PREGABALIN
     Dosage: UNK
  6. NASONEX [Concomitant]
     Active Substance: MOMETASONE FUROATE
     Dosage: UNK
  7. ALVESCO [Concomitant]
     Active Substance: CICLESONIDE
     Dosage: UNK
  8. VENTOLINE [Concomitant]
     Active Substance: ALBUTEROL
     Dosage: UNK
  9. ACETYLCYSTEINE. [Concomitant]
     Active Substance: ACETYLCYSTEINE
     Dosage: UNK
  10. GAMMANORM [Concomitant]
     Active Substance: HUMAN IMMUNOGLOBULIN G
     Dosage: UNK
  11. BAMBEC [Concomitant]
     Active Substance: BAMBUTEROL HYDROCHLORIDE
     Dosage: UNK
  12. EMERADE [Concomitant]
     Dosage: UNK
  13. MONTELUKAST [Concomitant]
     Active Substance: MONTELUKAST SODIUM
     Dosage: UNK
  14. EMLA (LIDOCAINE) [Concomitant]
     Dosage: UNK
  15. ALVEDON [Concomitant]
     Active Substance: ACETAMINOPHEN
     Dosage: UNK
  16. PREDNISOLONE. [Concomitant]
     Active Substance: PREDNISOLONE
     Dosage: UNK
  17. INNOVAIR [Concomitant]
     Active Substance: BECLOMETHASONE DIPROPIONATE\FORMOTEROL
     Dosage: UNK
  18. CALCICHEW-D3 [Concomitant]
     Active Substance: CALCIUM\CHOLECALCIFEROL
     Dosage: UNK
  19. CETIRIZINE [Concomitant]
     Active Substance: CETIRIZINE HYDROCHLORIDE
     Dosage: UNK
  20. NUCALA [Suspect]
     Active Substance: MEPOLIZUMAB
     Indication: ASTHMA
     Dosage: 20 MG, UNK
     Route: 058
     Dates: start: 20161012, end: 20161012
  21. XOLAIR [Concomitant]
     Active Substance: OMALIZUMAB
     Dosage: UNK
  22. CORTIMYK [Concomitant]
     Dosage: UNK
  23. SOOLANTRA [Concomitant]
     Active Substance: IVERMECTIN
     Dosage: UNK
  24. OMEPRAZOLE. [Concomitant]
     Active Substance: OMEPRAZOLE
     Dosage: UNK
  25. MIRVASO [Concomitant]
     Active Substance: BRIMONIDINE TARTRATE
     Dosage: UNK
  26. AIROMIR [Concomitant]
     Active Substance: ALBUTEROL SULFATE
     Dosage: UNK

REACTIONS (6)
  - Dizziness [Recovered/Resolved]
  - Head discomfort [Recovered/Resolved]
  - Neurological symptom [Recovered/Resolved]
  - Hypoaesthesia [Recovered/Resolved]
  - Muscular weakness [Recovered/Resolved]
  - Balance disorder [Recovered/Resolved]

NARRATIVE: CASE EVENT DATE: 20161012
